FAERS Safety Report 17143414 (Version 1)
Quarter: 2019Q4

REPORT INFORMATION
  Report Type: Spontaneous
  Country: CH (occurrence: CH)
  Receive Date: 20191211
  Receipt Date: 20191211
  Transmission Date: 20200122
  Serious: Yes (Hospitalization)
  Sender: FDA-Public Use
  Company Number: CH-AMERICAN REGENT INC-20190214

PATIENT
  Sex: Male

DRUGS (2)
  1. VENOFER [Suspect]
     Active Substance: IRON SUCROSE
     Dosage: 200 MG 30 MINUTES
     Dates: start: 20181010, end: 20181010
  2. MARCOUMAR [Concomitant]
     Active Substance: PHENPROCOUMON
     Dosage: UNKNOWN
     Route: 065

REACTIONS (8)
  - Chills [Recovered/Resolved]
  - Body temperature increased [Recovered/Resolved]
  - Loss of consciousness [Recovered/Resolved]
  - Sternal fracture [Recovered/Resolved]
  - Dizziness [Recovered/Resolved]
  - Nausea [Recovered/Resolved]
  - Fall [Recovered/Resolved]
  - Vomiting [Recovered/Resolved]

NARRATIVE: CASE EVENT DATE: 20181018
